FAERS Safety Report 4983961-1 (Version None)
Quarter: 2006Q1

REPORT INFORMATION
  Report Type: 
  Country: None (occurrence: None)
  Receive Date: 20060301
  Receipt Date: 20051208
  Transmission Date: 20060701
  Serious: No
  Sender: FDA-Public Use
  Company Number: S05-USA-05225-01

PATIENT
  Age: 82 Year
  Sex: Female

DRUGS (6)
  1. NAMENDA [Suspect]
     Indication: DEMENTIA
     Dosage: 5 MG BID PO
     Route: 048
     Dates: start: 20051205
  2. NAMENDA [Suspect]
     Indication: DEMENTIA
     Dosage: 5 MG QD PO
     Route: 048
     Dates: start: 20051128, end: 20051204
  3. PROZAC [Concomitant]
  4. CELEXA [Concomitant]
  5. ATIVAN [Concomitant]
  6. BLOOD PRESSURE MEDICATION (NOS) [Concomitant]

REACTIONS (1)
  - HEADACHE [None]
